FAERS Safety Report 16607011 (Version 1)
Quarter: 2019Q3

REPORT INFORMATION
  Report Type: Spontaneous
  Country: US (occurrence: US)
  Receive Date: 20190606
  Receipt Date: 20190606
  Transmission Date: 20191004
  Serious: No
  Sender: FDA-Public Use
  Company Number: None

PATIENT
  Age: 44 Year
  Sex: Male
  Weight: 74.39 kg

DRUGS (1)
  1. COSENTYX [Suspect]
     Active Substance: SECUKINUMAB
     Indication: ANKYLOSING SPONDYLITIS
     Dosage: INJECT 150MG (1 PEN) SUBCUTANEOUSLY AT DAY 28 (DOSE 5) THEN EVERY 4 WEEKS AS DIRECTED
     Route: 058
     Dates: start: 201903

REACTIONS (1)
  - Inflammation [None]
